FAERS Safety Report 11392860 (Version 1)
Quarter: 2015Q3

REPORT INFORMATION
  Report Type: Spontaneous
  Country: SE (occurrence: SE)
  Receive Date: 20150818
  Receipt Date: 20150818
  Transmission Date: 20151125
  Serious: Yes (Death)
  Sender: FDA-Public Use
  Company Number: SE-SA-2015SA121086

PATIENT
  Age: 37 Year
  Sex: Male

DRUGS (2)
  1. STILNOCT [Suspect]
     Active Substance: ZOLPIDEM TARTRATE
     Route: 065
     Dates: start: 201504
  2. COCILLANA-ETYFIN [Suspect]
     Active Substance: ETHYLMORPHINE HYDROCHLORIDE\HERBALS
     Route: 065
     Dates: start: 201504

REACTIONS (2)
  - Intentional product misuse [Fatal]
  - Death [Fatal]
